FAERS Safety Report 8245586-4 (Version None)
Quarter: 2012Q1

REPORT INFORMATION
  Report Type: 
  Country: None (occurrence: None)
  Receive Date: 20120330
  Receipt Date: 20120323
  Transmission Date: 20120608
  Serious: Yes (Hospitalization)
  Sender: FDA-Public Use
  Company Number: JP-BRISTOL-MYERS SQUIBB COMPANY-16386633

PATIENT
  Age: 38 Year
  Sex: Female
  Weight: 40 kg

DRUGS (2)
  1. ORENCIA [Suspect]
     Indication: RHEUMATOID ARTHRITIS
     Dosage: NO OF INF:04 INFUSION DATES:18NOV,30NOV,27DEC11
     Route: 041
     Dates: start: 20111102, end: 20111227
  2. PREDNISOLONE [Suspect]
     Indication: MIXED CONNECTIVE TISSUE DISEASE
     Route: 048

REACTIONS (1)
  - INTESTINAL PERFORATION [None]
